FAERS Safety Report 7971263-0 (Version None)
Quarter: 2011Q4

REPORT INFORMATION
  Report Type: 
  Country: None (occurrence: None)
  Receive Date: 20111212
  Receipt Date: 20101206
  Transmission Date: 20120403
  Serious: Yes (Hospitalization)
  Sender: FDA-Public Use
  Company Number: US-BRISTOL-MYERS SQUIBB COMPANY-15425838

PATIENT

DRUGS (1)
  1. IXEMPRA KIT [Suspect]
     Dosage: FIRST INFUSION.

REACTIONS (1)
  - PANCYTOPENIA [None]
